FAERS Safety Report 20501818 (Version 1)
Quarter: 2022Q1

REPORT INFORMATION
  Report Type: Other
  Country: US (occurrence: US)
  Receive Date: 20220222
  Receipt Date: 20220222
  Transmission Date: 20220424
  Serious: Yes (Hospitalization, Other)
  Sender: FDA-Public Use
  Company Number: US-BioDelivery Sciences International-2022BDSI0055

PATIENT
  Age: 28 Year
  Sex: Male

DRUGS (2)
  1. ONSOLIS [Suspect]
     Active Substance: FENTANYL CITRATE
     Indication: Product used for unknown indication
     Dosage: UNKNOWN; UNKNOWN
     Route: 065
  2. METHAMPHETAMINE [Suspect]
     Active Substance: METHAMPHETAMINE
     Indication: Product used for unknown indication
     Dosage: UNKNOWN; UNKNOWN
     Route: 065

REACTIONS (8)
  - Loss of consciousness [Recovered/Resolved]
  - Overdose [Recovered/Resolved]
  - Deafness neurosensory [Unknown]
  - Acute kidney injury [Unknown]
  - Hepatic failure [Unknown]
  - Lactic acidosis [Unknown]
  - Myocardial injury [Unknown]
  - Rhabdomyolysis [Unknown]
